FAERS Safety Report 5398750-6 (Version None)
Quarter: 2007Q3

REPORT INFORMATION
  Report Type: 
  Country: None (occurrence: None)
  Receive Date: 20070726
  Receipt Date: 20070402
  Transmission Date: 20080115
  Serious: No
  Sender: FDA-Public Use
  Company Number: US-AMGEN-KDL217795

PATIENT
  Sex: Male

DRUGS (11)
  1. EPOGEN [Suspect]
     Indication: DIALYSIS
  2. RENAGEL [Concomitant]
  3. CALCITRIOL [Concomitant]
  4. FOLIC ACID [Concomitant]
  5. TUMS [Concomitant]
  6. VITAMIN CAP [Concomitant]
  7. NORVASC [Concomitant]
  8. NEXIUM [Concomitant]
  9. KEPPRA [Concomitant]
  10. ALTACE [Concomitant]
  11. IRON DEXTRAN [Concomitant]

REACTIONS (1)
  - THERAPEUTIC RESPONSE DECREASED [None]
